FAERS Safety Report 19707731 (Version 1)
Quarter: 2021Q3

REPORT INFORMATION
  Report Type: Spontaneous
  Country: US (occurrence: US)
  Receive Date: 20210816
  Receipt Date: 20210816
  Transmission Date: 20211014
  Serious: Yes (Other)
  Sender: FDA-Public Use
  Company Number: None

PATIENT
  Age: 77 Year
  Sex: Male

DRUGS (2)
  1. NO DRUG NAME [Concomitant]
     Indication: PLASMA CELL MYELOMA
     Route: 048
  2. REVLIMID [Suspect]
     Active Substance: LENALIDOMIDE
     Indication: PLASMA CELL MYELOMA
     Route: 058
     Dates: start: 20200831

REACTIONS (7)
  - Atrioventricular block [None]
  - Vertigo positional [None]
  - Lung neoplasm malignant [None]
  - Atrial fibrillation [None]
  - Pulmonary hypertension [None]
  - Oedema peripheral [None]
  - Myocarditis [None]

NARRATIVE: CASE EVENT DATE: 20210719
